FAERS Safety Report 21120328 (Version 3)
Quarter: 2022Q4

REPORT INFORMATION
  Report Type: Report from Study
  Country: CA (occurrence: CA)
  Receive Date: 20220722
  Receipt Date: 20221006
  Transmission Date: 20230113
  Serious: Yes (Hospitalization, Other)
  Sender: FDA-Public Use
  Company Number: CA-TAKEDA-2022TUS048880

PATIENT
  Age: 46 Year
  Sex: Female

DRUGS (3)
  1. VEDOLIZUMAB [Suspect]
     Active Substance: VEDOLIZUMAB
     Indication: Crohn^s disease
     Dosage: 300 MILLIGRAM
     Route: 042
     Dates: start: 20220418
  2. VEDOLIZUMAB [Suspect]
     Active Substance: VEDOLIZUMAB
     Indication: Crohn^s disease
     Dosage: 108 MILLIGRAM
     Route: 058
     Dates: start: 20220811
  3. ENBREL [Suspect]
     Active Substance: ETANERCEPT
     Indication: Product used for unknown indication
     Dosage: 50 MILLIGRAM, 1/WEEK
     Route: 065

REACTIONS (10)
  - Gastrointestinal infection [Unknown]
  - Crohn^s disease [Unknown]
  - Rectal ulcer [Unknown]
  - Diabetes mellitus [Unknown]
  - Haematochezia [Unknown]
  - Mucous stools [Unknown]
  - Alopecia [Unknown]
  - Fistula [Unknown]
  - Night sweats [Unknown]
  - Fatigue [Not Recovered/Not Resolved]
